FAERS Safety Report 4492644-6 (Version None)
Quarter: 2004Q4

REPORT INFORMATION
  Report Type: 
  Country: None (occurrence: None)
  Receive Date: 20041029
  Receipt Date: 20041021
  Transmission Date: 20050328
  Serious: Yes (Other)
  Sender: FDA-Public Use
  Company Number: US-JNJFOC-20041006839

PATIENT
  Age: 21 Month
  Sex: Female
  Weight: 9.0719 kg

DRUGS (3)
  1. CHILDREN'S MOTRIN COLD GRAPE (IBUPROFEN/PSEUDOEPHEDRINE HCL) SUSPENSIO [Suspect]
     Indication: PAIN
     Dosage: 3.75 ML, 1 IN 1 TOTAL, ORAL
     Route: 048
     Dates: start: 20040920, end: 20040920
  2. CHILDREN'S MOTRIN COLD GRAPE (IBUPROFEN/PSEUDOEPHEDRINE HCL) SUSPENSIO [Suspect]
     Indication: PYREXIA
     Dosage: 3.75 ML, 1 IN 1 TOTAL, ORAL
     Route: 048
     Dates: start: 20040920, end: 20040920
  3. AMOXICILLIN [Concomitant]

REACTIONS (1)
  - FEBRILE CONVULSION [None]
